FAERS Safety Report 10548307 (Version 1)
Quarter: 2014Q4

REPORT INFORMATION
  Report Type: Spontaneous
  Country: US (occurrence: None)
  Receive Date: 20141027
  Receipt Date: 20141027
  Transmission Date: 20150529
  Serious: Yes (Other)
  Sender: FDA-Public Use
  Company Number: None

PATIENT
  Sex: Female
  Weight: 49.9 kg

DRUGS (3)
  1. XANAX [Concomitant]
     Active Substance: ALPRAZOLAM
  2. LUNESTA [Concomitant]
     Active Substance: ESZOPICLONE
  3. ESZOPICLONE. [Suspect]
     Active Substance: ESZOPICLONE
     Indication: INSOMNIA
     Dosage: 1 PILL
     Route: 048
     Dates: start: 20140531, end: 20141024

REACTIONS (10)
  - Product substitution issue [None]
  - Tachyphrenia [None]
  - Insomnia [None]
  - Hallucinations, mixed [None]
  - Delirium [None]
  - Panic reaction [None]
  - Fear [None]
  - Discomfort [None]
  - Palpitations [None]
  - Disorientation [None]

NARRATIVE: CASE EVENT DATE: 20141023
